FAERS Safety Report 4770187-X (Version None)
Quarter: 2005Q3

REPORT INFORMATION
  Report Type: 
  Country: None (occurrence: None)
  Receive Date: 20050915
  Receipt Date: 20050906
  Transmission Date: 20060218
  Serious: Yes (Hospitalization)
  Sender: FDA-Public Use
  Company Number: AU-JNJFOC-20050901949

PATIENT
  Age: 81 Year
  Sex: Male

DRUGS (10)
  1. TRAMADOL HCL [Suspect]
     Indication: PAIN
     Route: 065
  2. FENTANYL [Suspect]
     Indication: PAIN
     Route: 065
  3. IRBESARTAN [Concomitant]
     Route: 065
  4. CLOPIDOGREL [Concomitant]
     Route: 065
  5. ATENOLOL [Concomitant]
     Route: 065
  6. HEPARIN SODIUM [Concomitant]
     Indication: THROMBOPHLEBITIS
     Route: 065
  7. HEPARIN SODIUM [Concomitant]
     Indication: PHLEBITIS
     Route: 065
  8. MORPHINE SULFATE [Concomitant]
     Indication: PAIN
     Route: 065
  9. PANTOPRAZOLE [Concomitant]
     Route: 065
  10. PARACETAMOL [Concomitant]
     Indication: PAIN
     Route: 065

REACTIONS (2)
  - CONFUSIONAL STATE [None]
  - HYPONATRAEMIA [None]
